FAERS Safety Report 8885949 (Version 1)
Quarter: 2012Q4

REPORT INFORMATION
  Report Type: 
  Country: CO (occurrence: CO)
  Receive Date: 20121105
  Receipt Date: 20121105
  Transmission Date: 20130627
  Serious: Yes (Other)
  Sender: FDA-Public Use
  Company Number: CO-ABBOTT-12P-036-1004253-00

PATIENT
  Age: 32 None
  Sex: Male

DRUGS (3)
  1. HUMIRA PRE-FILLED SYRINGE [Suspect]
     Indication: ANKYLOSING SPONDYLITIS
     Route: 058
     Dates: start: 20100203, end: 20120928
  2. NAPROXEN [Concomitant]
     Indication: PAIN
  3. DICLOFENAC [Concomitant]
     Indication: PAIN

REACTIONS (7)
  - Blindness [Not Recovered/Not Resolved]
  - Eye pain [Not Recovered/Not Resolved]
  - Erythema [Not Recovered/Not Resolved]
  - Vision blurred [Not Recovered/Not Resolved]
  - Uveitis [Not Recovered/Not Resolved]
  - Pain in extremity [Not Recovered/Not Resolved]
  - Drug ineffective [Not Recovered/Not Resolved]
